FAERS Safety Report 14276172 (Version 1)
Quarter: 2017Q4

REPORT INFORMATION
  Report Type: Spontaneous
  Country: JP (occurrence: JP)
  Receive Date: 20171212
  Receipt Date: 20171212
  Transmission Date: 20180321
  Serious: Yes (Other)
  Sender: FDA-Public Use
  Company Number: JP-BAUSCH-BL-2017-033846

PATIENT
  Age: 56 Year
  Sex: Female

DRUGS (3)
  1. CISPLATIN. [Suspect]
     Active Substance: CISPLATIN
     Indication: GINGIVAL CANCER
     Route: 065
     Dates: start: 2009
  2. FLUOROURACIL. [Suspect]
     Active Substance: FLUOROURACIL
     Indication: GINGIVAL CANCER
     Route: 065
     Dates: start: 2009
  3. TAXOTERE [Suspect]
     Active Substance: DOCETAXEL
     Indication: GINGIVAL CANCER
     Route: 065
     Dates: start: 2009

REACTIONS (1)
  - Leukopenia [Unknown]
